FAERS Safety Report 5798392-4 (Version None)
Quarter: 2008Q2

REPORT INFORMATION
  Report Type: 
  Country: None (occurrence: None)
  Receive Date: 20080601
  Receipt Date: 20080125
  Transmission Date: 20081010
  Serious: No
  Sender: FDA-Public Use
  Company Number: US200801005976

PATIENT
  Sex: Male

DRUGS (2)
  1. BYETTA [Suspect]
     Indication: DIABETES MELLITUS
     Dosage: 20 UG, 2/D, SUBCUTANEOUS
     Route: 058
     Dates: start: 20080101
  2. LIPITOR [Concomitant]

REACTIONS (2)
  - DRUG DISPENSING ERROR [None]
  - OVERDOSE [None]
